FAERS Safety Report 9218254 (Version 2)
Quarter: 2013Q2

REPORT INFORMATION
  Report Type: Spontaneous
  Country: US (occurrence: US)
  Receive Date: 20130408
  Receipt Date: 20130418
  Transmission Date: 20140414
  Serious: Yes (Hospitalization)
  Sender: FDA-Public Use
  Company Number: US-009507513-1304USA002424

PATIENT
  Sex: 0

DRUGS (1)
  1. COSOPT [Suspect]
     Indication: GLAUCOMA
     Dosage: 1 DROP EACH EYE THREE TIMES PER DAY
     Route: 031

REACTIONS (1)
  - Neck surgery [Unknown]
